FAERS Safety Report 4821831-X (Version None)
Quarter: 2005Q4

REPORT INFORMATION
  Report Type: 
  Country: None (occurrence: None)
  Receive Date: 20051103
  Receipt Date: 20051026
  Transmission Date: 20060501
  Serious: Yes (Other)
  Sender: FDA-Public Use
  Company Number: 200410874BCA

PATIENT
  Age: 48 Year
  Sex: Male
  Weight: 105.2345 kg

DRUGS (4)
  1. GAMUNEX [Suspect]
     Indication: BURKITT'S LYMPHOMA
     Dosage: SEE IMAGE
     Route: 042
     Dates: start: 20041031
  2. GAMUNEX [Suspect]
     Indication: BURKITT'S LYMPHOMA
     Dosage: SEE IMAGE
     Route: 042
     Dates: start: 20041101
  3. BENADRYL [Concomitant]
  4. TYLENOL (CAPLET) [Concomitant]

REACTIONS (4)
  - HAEMOGLOBIN DECREASED [None]
  - HYPERTENSION [None]
  - INFUSION RELATED REACTION [None]
  - UNEVALUABLE EVENT [None]
